FAERS Safety Report 4268719-3 (Version None)
Quarter: 2004Q1

REPORT INFORMATION
  Report Type: 
  Country: None (occurrence: None)
  Receive Date: 20040109
  Receipt Date: 20031230
  Transmission Date: 20041129
  Serious: Yes (Hospitalization, Other)
  Sender: FDA-Public Use
  Company Number: HQWYE956330DEC03

PATIENT
  Age: 9 Year
  Sex: Male

DRUGS (6)
  1. CHILDREN'S ADVIL [Suspect]
     Indication: COUGH
     Dosage: (ALTERNATING WITH EFFERALGAN)
     Route: 048
     Dates: start: 20031120, end: 20031126
  2. CHILDREN'S ADVIL [Suspect]
     Indication: INFLUENZA
     Dosage: (ALTERNATING WITH EFFERALGAN)
     Route: 048
     Dates: start: 20031120, end: 20031126
  3. CHILDREN'S ADVIL [Suspect]
     Indication: PHARYNGITIS
     Dosage: (ALTERNATING WITH EFFERALGAN)
     Route: 048
     Dates: start: 20031120, end: 20031126
  4. CHILDREN'S ADVIL [Suspect]
     Indication: PYREXIA
     Dosage: (ALTERNATING WITH EFFERALGAN)
     Route: 048
     Dates: start: 20031120, end: 20031126
  5. ACETAMINOPHEN [Concomitant]
  6. AUGMENTIN [Concomitant]

REACTIONS (8)
  - ABDOMINAL PAIN [None]
  - C-REACTIVE PROTEIN INCREASED [None]
  - LUNG DISORDER [None]
  - NAUSEA [None]
  - PLEURAL EFFUSION [None]
  - RENAL FAILURE ACUTE [None]
  - VOMITING [None]
  - WHITE BLOOD CELL COUNT INCREASED [None]
